FAERS Safety Report 10243437 (Version 1)
Quarter: 2014Q2

REPORT INFORMATION
  Report Type: Spontaneous
  Country: US (occurrence: US)
  Receive Date: 20140618
  Receipt Date: 20140618
  Transmission Date: 20141212
  Serious: No
  Sender: FDA-Public Use
  Company Number: US-BAYER-2014-091208

PATIENT
  Age: 22 Year
  Sex: Male
  Weight: 104.31 kg

DRUGS (1)
  1. ALEVE CAPLET [Suspect]
     Indication: HEADACHE
     Dosage: 1 DF, PRN
     Route: 048
     Dates: start: 201302, end: 201307

REACTIONS (2)
  - Blister [Recovered/Resolved]
  - Scar [Not Recovered/Not Resolved]
